FAERS Safety Report 10678940 (Version 1)
Quarter: 2014Q4

REPORT INFORMATION
  Report Type: Spontaneous
  Country: US (occurrence: None)
  Receive Date: 20141224
  Receipt Date: 20141224
  Transmission Date: 20150529
  Serious: Yes (Other)
  Sender: FDA-Public Use
  Company Number: None

PATIENT
  Sex: Female
  Weight: 68.2 kg

DRUGS (7)
  1. FORTEO [Suspect]
     Active Substance: TERIPARATIDE
     Indication: OSTEOPOROSIS
     Route: 058
     Dates: start: 20141126
  2. ASPIRIN. [Concomitant]
     Active Substance: ASPIRIN
  3. TRIAM/HCTZ [Concomitant]
  4. METOPROLOL [Concomitant]
     Active Substance: METOPROLOL
  5. ESTRADIOL. [Concomitant]
     Active Substance: ESTRADIOL
  6. LEVOTHYROXINE [Concomitant]
     Active Substance: LEVOTHYROXINE
  7. SIMVASTATIN. [Concomitant]
     Active Substance: SIMVASTATIN

REACTIONS (2)
  - Back pain [None]
  - Bone pain [None]
